FAERS Safety Report 24125551 (Version 2)
Quarter: 2024Q3

REPORT INFORMATION
  Report Type: Spontaneous
  Country: GB (occurrence: GB)
  Receive Date: 20240723
  Receipt Date: 20240819
  Transmission Date: 20241017
  Serious: Yes (Life-Threatening, Other)
  Sender: EXELIXIS
  Company Number: GB-IPSEN Group, Research and Development-2024-02742

PATIENT
  Age: 55 Year
  Sex: Female
  Weight: 110 kg

DRUGS (5)
  1. CABOMETYX [Suspect]
     Active Substance: CABOZANTINIB S-MALATE
     Indication: Leiomyosarcoma metastatic
     Dosage: 60 MG, QD
     Route: 048
     Dates: start: 20231214
  2. CABOMETYX [Suspect]
     Active Substance: CABOZANTINIB S-MALATE
     Indication: Off label use
     Dosage: 60 MG, QD
     Route: 048
     Dates: start: 20231215, end: 20240209
  3. CABOMETYX [Suspect]
     Active Substance: CABOZANTINIB S-MALATE
     Dosage: 40 MG, QD
     Route: 048
     Dates: start: 20240216
  4. EDOXABAN [Concomitant]
     Active Substance: EDOXABAN
     Indication: Pulmonary embolism
     Dosage: 60 MG, QD
     Route: 048
     Dates: start: 20240229
  5. FAMOTIDINE [Concomitant]
     Active Substance: FAMOTIDINE
     Indication: Dyspepsia
     Dosage: 20 MG, BID
     Route: 048
     Dates: start: 20240620

REACTIONS (8)
  - Pneumothorax [Recovering/Resolving]
  - Malignant neoplasm progression [Unknown]
  - Hypothyroidism [Unknown]
  - Diarrhoea [Recovering/Resolving]
  - Mucosal inflammation [Recovering/Resolving]
  - Fatigue [Recovering/Resolving]
  - Arthralgia [Recovering/Resolving]
  - Off label use [Unknown]

NARRATIVE: CASE EVENT DATE: 20231214
